FAERS Safety Report 7316977-0 (Version None)
Quarter: 2011Q1

REPORT INFORMATION
  Report Type: 
  Country: None (occurrence: None)
  Receive Date: 20110226
  Receipt Date: 20100907
  Transmission Date: 20110831
  Serious: No
  Sender: FDA-Public Use
  Company Number: US-ALLERGAN-1011542US

PATIENT
  Age: 72 Year
  Sex: Female

DRUGS (14)
  1. MULTIVITAMIN                       /00097801/ [Concomitant]
  2. VITAMIN A [Concomitant]
  3. PROPRANOLOL [Concomitant]
  4. TRAZODONE HCL [Concomitant]
  5. JUVEDERM ULTRA PLUS [Concomitant]
     Indication: SKIN WRINKLING
     Dosage: UNK
     Dates: start: 20100401, end: 20100401
  6. ZOLOFT [Concomitant]
  7. CALCIUM [Concomitant]
  8. VALTREX [Concomitant]
  9. PREVACID [Concomitant]
  10. CLONAZEPAM [Concomitant]
  11. BOTOX COSMETIC [Suspect]
     Indication: SKIN WRINKLING
     Dosage: UNK
     Route: 030
     Dates: start: 20100401, end: 20100401
  12. COUMADIN [Concomitant]
  13. PRAVASTATIN [Concomitant]
  14. MAGNESIUM [Concomitant]

REACTIONS (2)
  - THERAPEUTIC RESPONSE UNEXPECTED [None]
  - INJECTION SITE HAEMATOMA [None]
